FAERS Safety Report 4444508-1 (Version None)
Quarter: 2004Q3

REPORT INFORMATION
  Report Type: 
  Country: None (occurrence: None)
  Receive Date: 20040902
  Receipt Date: 20040727
  Transmission Date: 20050211
  Serious: Yes (Other)
  Sender: FDA-Public Use
  Company Number: A-US2004-06622

PATIENT
  Age: 64 Year
  Sex: Female

DRUGS (10)
  1. TRACLEER [Suspect]
     Indication: PULMONARY HYPERTENSION
     Dosage: 62.5 + 125 MG, BID, ORAL
     Route: 048
     Dates: start: 20040524, end: 20040601
  2. TRACLEER [Suspect]
     Indication: PULMONARY HYPERTENSION
     Dosage: 62.5 + 125 MG, BID, ORAL
     Route: 048
     Dates: start: 20040601
  3. NEXIUM [Concomitant]
  4. ZELNORM [Concomitant]
  5. CELEBREX [Concomitant]
  6. TYLENOL [Concomitant]
  7. COMBIVENT (SALBUTAMOL SULFATE, IPRATROPIUM BROMIDE) [Concomitant]
  8. VITAMIN E [Concomitant]
  9. VITAMIN C (ASCORBIC ACID) [Concomitant]
  10. VITAMIN B COMPLEX CAP [Concomitant]

REACTIONS (4)
  - ALANINE AMINOTRANSFERASE INCREASED [None]
  - ASPARTATE AMINOTRANSFERASE INCREASED [None]
  - BLOOD BILIRUBIN INCREASED [None]
  - OEDEMA PERIPHERAL [None]
